FAERS Safety Report 5796366-0 (Version None)
Quarter: 2008Q2

REPORT INFORMATION
  Report Type: 
  Country: None (occurrence: None)
  Receive Date: 20080630
  Receipt Date: 20080630
  Transmission Date: 20081010
  Serious: Yes (Other)
  Sender: FDA-Public Use
  Company Number: None

PATIENT
  Age: 51 Year
  Sex: Female
  Weight: 54.4316 kg

DRUGS (4)
  1. CYMBALTA [Suspect]
     Indication: MUSCULOSKELETAL PAIN
     Dosage: 20 MG 2 PER DIEM
     Dates: start: 20061101, end: 20080620
  2. CYMBALTA [Suspect]
     Indication: MYALGIA
     Dosage: 20 MG 2 PER DIEM
     Dates: start: 20061101, end: 20080620
  3. CYMBALTA [Suspect]
     Indication: NECK PAIN
     Dosage: 20 MG 2 PER DIEM
     Dates: start: 20061101, end: 20080620
  4. CYMBALTA [Suspect]
     Indication: NEURALGIA
     Dosage: 20 MG 2 PER DIEM
     Dates: start: 20061101, end: 20080620

REACTIONS (16)
  - ACTIVITIES OF DAILY LIVING IMPAIRED [None]
  - AMNESIA [None]
  - DEPRESSION [None]
  - DIZZINESS [None]
  - DRUG WITHDRAWAL SYNDROME [None]
  - EAR DISCOMFORT [None]
  - FATIGUE [None]
  - HEADACHE [None]
  - HYPOAESTHESIA ORAL [None]
  - MICTURITION URGENCY [None]
  - MUSCLE SPASMS [None]
  - NERVE INJURY [None]
  - PAIN [None]
  - SOMNOLENCE [None]
  - TINNITUS [None]
  - WEIGHT DECREASED [None]
